FAERS Safety Report 6722784-X (Version None)
Quarter: 2010Q2

REPORT INFORMATION
  Report Type: 
  Country: None (occurrence: None)
  Receive Date: 20100512
  Receipt Date: 20100512
  Transmission Date: 20101027
  Serious: Yes (Disabling, Other)
  Sender: FDA-Public Use
  Company Number: None

PATIENT
  Sex: Female
  Weight: 65.7716 kg

DRUGS (2)
  1. ABILIFY [Suspect]
     Indication: AGGRESSION
     Dosage: 1 TABLET ONCE DAILY PO
     Route: 048
     Dates: start: 20100313, end: 20100424
  2. ABILIFY [Suspect]
     Indication: MOOD SWINGS
     Dosage: 1 TABLET ONCE DAILY PO
     Route: 048
     Dates: start: 20100313, end: 20100424

REACTIONS (3)
  - ACTIVITIES OF DAILY LIVING IMPAIRED [None]
  - GAIT DISTURBANCE [None]
  - UNEVALUABLE EVENT [None]
